FAERS Safety Report 13595236 (Version 1)
Quarter: 2017Q2

REPORT INFORMATION
  Report Type: Spontaneous
  Country: US (occurrence: US)
  Receive Date: 20170531
  Receipt Date: 20170531
  Transmission Date: 20170830
  Serious: Yes (Other)
  Sender: FDA-Public Use
  Company Number: US-STRIDES ARCOLAB LIMITED-2016SP019440

PATIENT

DRUGS (3)
  1. LAMIVUDINE AND ZIDOVUDINE TABLETS [Suspect]
     Active Substance: LAMIVUDINE\ZIDOVUDINE
     Indication: HIV INFECTION
     Dosage: LAMIVUDINE 150 MG AND ZIDOVUDINE 300 MG, BID
     Route: 048
  2. NEVIRAPINE. [Suspect]
     Active Substance: NEVIRAPINE
     Indication: HIV INFECTION
     Dosage: 200 MG, QD
     Route: 048
  3. NEVIRAPINE. [Suspect]
     Active Substance: NEVIRAPINE
     Dosage: 200 MG, BID
     Route: 048

REACTIONS (3)
  - Viral mutation identified [Unknown]
  - Exposure during pregnancy [Unknown]
  - Drug resistance [Unknown]
